FAERS Safety Report 24707958 (Version 1)
Quarter: 2024Q4

REPORT INFORMATION
  Report Type: Spontaneous
  Country: JP (occurrence: JP)
  Receive Date: 20241206
  Receipt Date: 20241206
  Transmission Date: 20250114
  Serious: Yes (Life-Threatening, Hospitalization, Other)
  Sender: INTERCHEM
  Company Number: JP-HQ SPECIALTY-JP-2024INT000109

PATIENT
  Age: 83 Year
  Sex: Female

DRUGS (4)
  1. DEXMEDETOMIDINE HYDROCHLORIDE [Suspect]
     Active Substance: DEXMEDETOMIDINE HYDROCHLORIDE
     Indication: Sedation
     Dosage: 6 MICROGRAM/KILOGRAM/MIN, SINGLE
     Route: 065
  2. AMIODARONE [Suspect]
     Active Substance: AMIODARONE
     Indication: Atrial fibrillation
     Dosage: 100 MG, QD
     Route: 065
  3. BISOPROLOL [Suspect]
     Active Substance: BISOPROLOL
     Indication: Atrial fibrillation
     Dosage: 1.25 MG, QD
     Route: 065
  4. APIXABAN [Concomitant]
     Active Substance: APIXABAN
     Indication: Anticoagulation drug level therapeutic
     Dosage: UNK, UNK
     Route: 065

REACTIONS (2)
  - Cardiac arrest [Recovered/Resolved]
  - Paroxysmal atrioventricular block [Recovered/Resolved]
